FAERS Safety Report 6216804-9 (Version None)
Quarter: 2009Q2

REPORT INFORMATION
  Report Type: 
  Country: None (occurrence: None)
  Receive Date: 20090603
  Receipt Date: 20090603
  Transmission Date: 20091009
  Serious: Yes (Life-Threatening, Disabling)
  Sender: FDA-Public Use
  Company Number: None

PATIENT
  Age: 74 Year
  Sex: Female
  Weight: 68.0396 kg

DRUGS (4)
  1. METRONIDAZOLE [Suspect]
     Dosage: 1 PILL STOPPED AFTER ORAL
     Route: 048
     Dates: start: 20080225
  2. CLINDAMYCIN [Suspect]
     Dosage: 1 PILL  STOPPED AFTER  ORAL
     Route: 048
     Dates: start: 20080225
  3. TETRACYCLINE [Concomitant]
  4. CIPROFLOXAXIN [Concomitant]

REACTIONS (2)
  - HYPOAESTHESIA [None]
  - MONOPARESIS [None]
